FAERS Safety Report 14502366 (Version 12)
Quarter: 2018Q3

REPORT INFORMATION
  Report Type: Spontaneous
  Country: FR (occurrence: FR)
  Receive Date: 20180208
  Receipt Date: 20180731
  Transmission Date: 20181010
  Serious: Yes (Death, Hospitalization, Other)
  Sender: FDA-Public Use
  Company Number: FR-AXELLIA-001352

PATIENT
  Age: 71 Year
  Sex: Male
  Weight: 113.4 kg

DRUGS (31)
  1. LINEZOLID. [Suspect]
     Active Substance: LINEZOLID
     Indication: SKIN INFECTION
     Dosage: 600 MG, BID
     Route: 048
     Dates: start: 20161222, end: 20170110
  2. FUROSEMIDE. [Concomitant]
     Active Substance: FUROSEMIDE
  3. LANTUS [Concomitant]
     Active Substance: INSULIN GLARGINE
  4. CUBICIN [Suspect]
     Active Substance: DAPTOMYCIN
     Indication: PRODUCT USED FOR UNKNOWN INDICATION
     Dosage: 800 MG, QD?DOSAGE FORM: POWDER FOR SOLUTION FOR INFUSION
     Route: 042
     Dates: start: 20170110, end: 20170201
  5. COLESTYRAMINE [Suspect]
     Active Substance: CHOLESTYRAMINE
     Indication: PRODUCT USED FOR UNKNOWN INDICATION
     Route: 048
     Dates: start: 20161216, end: 20170119
  6. DUPHALAC [Concomitant]
     Active Substance: LACTULOSE
  7. QUESTRAN [Suspect]
     Active Substance: CHOLESTYRAMINE
     Indication: PRODUCT USED FOR UNKNOWN INDICATION
     Dosage: 4 G, QD?DOSE: 1 DOSAGE FORM
     Route: 048
     Dates: start: 20161216, end: 20170119
  8. POLARAMINE [Concomitant]
     Active Substance: DEXCHLORPHENIRAMINE MALEATE
  9. BUDESONIDE/FORMOTEROL [Suspect]
     Active Substance: BUDESONIDE\FORMOTEROL
     Indication: PRODUCT USED FOR UNKNOWN INDICATION
     Route: 055
     Dates: start: 20161220, end: 20170119
  10. BUDESONIDE. [Suspect]
     Active Substance: BUDESONIDE
     Indication: PRODUCT USED FOR UNKNOWN INDICATION
     Dosage: 1 DF, QD
     Route: 055
     Dates: start: 20161220, end: 20170119
  11. UMULINE ZINC COMPOSE [Concomitant]
     Active Substance: INSULIN HUMAN
  12. PIPERACILLIN SODIUM/TAZOBACTAM SODIUM [Suspect]
     Active Substance: PIPERACILLIN SODIUM\TAZOBACTAM SODIUM
     Indication: SKIN INFECTION
     Dosage: 1 DF, 3X/DAY
     Route: 042
     Dates: start: 20161204, end: 20170130
  13. ULTRAVIST [Suspect]
     Active Substance: IOPROMIDE
     Indication: CHEST SCAN
     Dosage: 370 MG, UNK
     Route: 042
     Dates: start: 20170116, end: 20170116
  14. NEFOPAM [Suspect]
     Active Substance: NEFOPAM
     Indication: PRODUCT USED FOR UNKNOWN INDICATION
     Dosage: UNK
     Route: 042
     Dates: start: 20161202, end: 20170119
  15. LINEZOLIDE ARROW [Suspect]
     Active Substance: LINEZOLID
     Indication: SKIN INFECTION
     Dosage: STRENGTH: 600 MG, ?600 MG, BID
     Route: 048
     Dates: start: 20161222, end: 20170110
  16. DAPTOMYCIN. [Suspect]
     Active Substance: DAPTOMYCIN
     Indication: PRODUCT USED FOR UNKNOWN INDICATION
     Route: 042
     Dates: start: 20170110
  17. RIFAMPIN. [Suspect]
     Active Substance: RIFAMPIN
     Indication: PRODUCT USED FOR UNKNOWN INDICATION
  18. KARDEGIC [Concomitant]
     Active Substance: ASPIRIN DL-LYSINE
  19. LOVENOX [Concomitant]
     Active Substance: ENOXAPARIN SODIUM
     Dates: end: 20170114
  20. PRIMPERAN [Suspect]
     Active Substance: METOCLOPRAMIDE HYDROCHLORIDE
     Indication: PRODUCT USED FOR UNKNOWN INDICATION
     Dosage: 10 MG, TID (3 DF, TID (1 DF TID))
     Route: 048
     Dates: start: 20161224, end: 20170119
  21. PANTOPRAZOLE [Suspect]
     Active Substance: PANTOPRAZOLE
     Indication: PRODUCT USED FOR UNKNOWN INDICATION
     Dosage: QID;?2 DF, 4X/DAY
     Route: 042
     Dates: start: 20161225, end: 20170119
  22. ACETORPHAN [Suspect]
     Active Substance: RACECADOTRIL
     Indication: PRODUCT USED FOR UNKNOWN INDICATION
     Dosage: 100 MG, TID (1 DF)
     Route: 048
     Dates: start: 20161209, end: 20170119
  23. METOCLOPRAMIDE. [Suspect]
     Active Substance: METOCLOPRAMIDE
     Indication: PRODUCT USED FOR UNKNOWN INDICATION
     Route: 048
  24. LOPERAMIDE [Concomitant]
     Active Substance: LOPERAMIDE
  25. LOPERAMIDE ARROW [Concomitant]
     Active Substance: LOPERAMIDE
  26. VANCOMYCIN [Suspect]
     Active Substance: VANCOMYCIN
     Indication: PRODUCT USED FOR UNKNOWN INDICATION
  27. PARACETAMOL/TRAMADOL HYDROCHLORIDE [Suspect]
     Active Substance: ACETAMINOPHEN\TRAMADOL HYDROCHLORIDE
     Indication: PRODUCT USED FOR UNKNOWN INDICATION
     Dosage: 2 DF, 4X/DAY
     Route: 048
     Dates: start: 20161201, end: 20170119
  28. BUDESONIDE/FORMOTEROL FUMARATE [Suspect]
     Active Substance: BUDESONIDE\FORMOTEROL FUMARATE
     Indication: PRODUCT USED FOR UNKNOWN INDICATION
     Dosage: UNK, QD
     Route: 055
     Dates: start: 20161220, end: 20170119
  29. RIFADIN [Suspect]
     Active Substance: RIFAMPIN
     Indication: PRODUCT USED FOR UNKNOWN INDICATION
  30. DIFFU?K [Concomitant]
     Active Substance: POTASSIUM CHLORIDE
  31. LOPRAM [Concomitant]

REACTIONS (25)
  - Hepatic encephalopathy [Fatal]
  - Thrombocytopenia [Fatal]
  - Human herpesvirus 6 infection [None]
  - Hepatic cirrhosis [None]
  - Glomerular filtration rate decreased [Fatal]
  - Rectal haemorrhage [Fatal]
  - Alveolar lung disease [Fatal]
  - Restlessness [Fatal]
  - Rash erythematous [None]
  - Sepsis [Fatal]
  - Hyperammonaemia [Fatal]
  - Dyspnoea [Fatal]
  - Eosinophilia [Fatal]
  - Eosinophilic pneumonia [Fatal]
  - Generalised oedema [Fatal]
  - Human herpesvirus 7 infection [None]
  - Pulmonary interstitial emphysema syndrome [Fatal]
  - Death [Fatal]
  - Computerised tomogram abnormal [None]
  - Death [None]
  - Polymerase chain reaction positive [None]
  - Rash maculo-papular [Fatal]
  - Acute kidney injury [Fatal]
  - Eczema [Fatal]
  - Diffuse alveolar damage [Fatal]

NARRATIVE: CASE EVENT DATE: 20161227
